FAERS Safety Report 9888054 (Version 1)
Quarter: 2014Q1

REPORT INFORMATION
  Report Type: Spontaneous
  Country: US (occurrence: US)
  Receive Date: 20140211
  Receipt Date: 20140211
  Transmission Date: 20141002
  Serious: Yes (Hospitalization)
  Sender: FDA-Public Use
  Company Number: US-BRACCO-010558

PATIENT
  Sex: Female

DRUGS (1)
  1. BARIUM SULFATE [Suspect]
     Indication: X-RAY GASTROINTESTINAL TRACT
     Dosage: ADMINISTERED BY MEANS OF A PERCUTANEOUS ENDOSCOPIC GASTROSTOMY TUBE
     Route: 050

REACTIONS (5)
  - Foreign body aspiration [Not Recovered/Not Resolved]
  - Dyspnoea [Not Recovered/Not Resolved]
  - Hypoxia [Not Recovered/Not Resolved]
  - Oxygen saturation decreased [Not Recovered/Not Resolved]
  - Medication residue present [Not Recovered/Not Resolved]
